FAERS Safety Report 6310669-2 (Version None)
Quarter: 2009Q3

REPORT INFORMATION
  Report Type: 
  Country: None (occurrence: None)
  Receive Date: 20090810
  Receipt Date: 20090728
  Transmission Date: 20100115
  Serious: Yes (Death)
  Sender: FDA-Public Use
  Company Number: 1000007808

PATIENT
  Age: 75 Year
  Sex: Female

DRUGS (6)
  1. ESCITALOPRAM [Suspect]
     Indication: DEPRESSION
     Dosage: 10 MG (10 MG, 1 IN 1 D),ORAL
     Route: 048
     Dates: start: 20090316
  2. LOFTYL(TABLETS) [Concomitant]
  3. SOLOSA(TABLETS) [Concomitant]
  4. OMEPRAZOLE [Concomitant]
  5. NEUROBION (TABLETS) [Concomitant]
  6. GLUCOPHAGE [Concomitant]

REACTIONS (1)
  - DIABETIC COMA [None]
